FAERS Safety Report 6731268-4 (Version None)
Quarter: 2010Q2

REPORT INFORMATION
  Report Type: 
  Country: None (occurrence: None)
  Receive Date: 20100517
  Receipt Date: 20100517
  Transmission Date: 20101027
  Serious: Yes (Death)
  Sender: FDA-Public Use
  Company Number: None

PATIENT
  Sex: Male
  Weight: 68.2 kg

DRUGS (2)
  1. SORAFENIB 400MG DAILY PFIZER [Suspect]
     Indication: PANCREATIC CARCINOMA
     Dosage: SORAFENIB 400MG EVERY DAY PO
     Route: 048
     Dates: start: 20100331, end: 20100424
  2. ERLOTINIB HYDROCHLORIDE [Suspect]
     Indication: PANCREATIC CARCINOMA
     Dosage: ERLOTINIB 150MG EVERY DAY PO
     Route: 048
     Dates: start: 20100331, end: 20100424

REACTIONS (2)
  - MALIGNANT NEOPLASM PROGRESSION [None]
  - PANCREATIC CARCINOMA [None]
